FAERS Safety Report 25398272 (Version 1)
Quarter: 2025Q2

REPORT INFORMATION
  Report Type: Spontaneous
  Country: US (occurrence: US)
  Receive Date: 20250604
  Receipt Date: 20250604
  Transmission Date: 20250716
  Serious: No
  Sender: SANOFI AVENTIS
  Company Number: US-SA-2025SA157891

PATIENT
  Age: 40 Year
  Sex: Male

DRUGS (1)
  1. DUPIXENT [Suspect]
     Active Substance: DUPILUMAB
     Indication: Dermatitis atopic
     Route: 058
     Dates: start: 20250520, end: 20250520

REACTIONS (3)
  - Injection site pain [Recovered/Resolved]
  - Product administered at inappropriate site [Unknown]
  - Product preparation error [Unknown]

NARRATIVE: CASE EVENT DATE: 20250520
